FAERS Safety Report 15626197 (Version 1)
Quarter: 2018Q4

REPORT INFORMATION
  Report Type: Spontaneous
  Country: US (occurrence: US)
  Receive Date: 20181116
  Receipt Date: 20181116
  Transmission Date: 20190205
  Serious: Yes (Hospitalization)
  Sender: FDA-Public Use
  Company Number: None

PATIENT
  Age: 66 Year
  Sex: Female
  Weight: 77.2 kg

DRUGS (7)
  1. PROCHLORPERAZINE 10MG PO PRN [Concomitant]
     Dates: start: 20181002
  2. IMODIUM 2MG PO PRN [Concomitant]
     Dates: start: 20181002, end: 20181005
  3. NIVOLUMAB [Suspect]
     Active Substance: NIVOLUMAB
     Indication: ENDOMETRIAL CANCER
     Dosage: OTHER FREQUENCY:Q 28 DAYS;?
     Route: 042
     Dates: start: 20180912, end: 20181010
  4. MIRABEGRON 25MG PO [Concomitant]
     Dates: start: 20181002, end: 20181005
  5. RUCAPARIB [Suspect]
     Active Substance: RUCAPARIB
     Indication: ENDOMETRIAL CANCER
     Route: 048
     Dates: start: 20180912, end: 20181103
  6. CELEBREX 200MG PO [Concomitant]
     Dates: start: 20181003, end: 20181005
  7. OXYCODONE 10MG PO PRN [Concomitant]
     Dates: start: 20181002, end: 20181005

REACTIONS (8)
  - Diarrhoea [None]
  - Pelvic mass [None]
  - Abdominal pain [None]
  - Decreased appetite [None]
  - Flatulence [None]
  - Atelectasis [None]
  - Condition aggravated [None]
  - Hypophagia [None]

NARRATIVE: CASE EVENT DATE: 20181002
